FAERS Safety Report 16070607 (Version 3)
Quarter: 2019Q2

REPORT INFORMATION
  Report Type: Report from Study
  Country: DE (occurrence: DE)
  Receive Date: 20190314
  Receipt Date: 20190404
  Transmission Date: 20190711
  Serious: Yes (Hospitalization)
  Sender: FDA-Public Use
  Company Number: DE-ROCHE-2282842

PATIENT
  Age: 66 Year
  Sex: Male
  Weight: 74 kg

DRUGS (4)
  1. ACICLOVIR [Concomitant]
     Active Substance: ACYCLOVIR
     Route: 048
     Dates: start: 20180905
  2. VENETOCLAX. [Suspect]
     Active Substance: VENETOCLAX
     Indication: CHRONIC LYMPHOCYTIC LEUKAEMIA
     Dosage: MOST RECENT DOSE PRIOR TO EVENT ONSET ON 10/MAR/2019 (400 MG)?CYCLE 1: 20 MG (2 TABL. AT 10 MG), D22
     Route: 048
     Dates: start: 20181105
  3. OBINUTUZUMAB. [Suspect]
     Active Substance: OBINUTUZUMAB
     Indication: CHRONIC LYMPHOCYTIC LEUKAEMIA
     Dosage: MOST RECENT DOSE PRIOR TO EVENT ONSET ON 01/FEB/2019 (1000 MG)?CYCLE 1: 100 MG, D1; 900 MG, D1(2); 1
     Route: 042
     Dates: start: 20180913
  4. COTRIM FORTE [Concomitant]
     Active Substance: SULFAMETHOXAZOLE\TRIMETHOPRIM
     Route: 048
     Dates: start: 20180905

REACTIONS (1)
  - Epididymitis [Recovered/Resolved with Sequelae]

NARRATIVE: CASE EVENT DATE: 20190311
